FAERS Safety Report 19082091 (Version 1)
Quarter: 2021Q2

REPORT INFORMATION
  Report Type: Spontaneous
  Country: US (occurrence: US)
  Receive Date: 20210401
  Receipt Date: 20210401
  Transmission Date: 20210717
  Serious: Yes (Other)
  Sender: FDA-Public Use
  Company Number: US-LUPIN PHARMACEUTICALS INC.-2021-03910

PATIENT
  Age: 77 Year
  Sex: Male

DRUGS (1)
  1. ALBENDAZOLE. [Suspect]
     Active Substance: ALBENDAZOLE
     Indication: HYPEREOSINOPHILIC SYNDROME
     Dosage: UNK?COURSE COMPLETED
     Route: 065

REACTIONS (1)
  - Drug ineffective [Unknown]
